FAERS Safety Report 10893725 (Version 1)
Quarter: 2015Q1

REPORT INFORMATION
  Report Type: Spontaneous
  Country: US (occurrence: US)
  Receive Date: 20150306
  Receipt Date: 20150306
  Transmission Date: 20150721
  Serious: No
  Sender: FDA-Public Use
  Company Number: US-AMGEN-USASP2014044260

PATIENT
  Age: 52 Year
  Sex: Female

DRUGS (1)
  1. ENBREL [Suspect]
     Active Substance: ETANERCEPT
     Indication: CORNEAL DISORDER
     Dosage: 50 MG, QWK
     Route: 058
     Dates: start: 201403, end: 201405

REACTIONS (1)
  - Drug ineffective [Unknown]
